FAERS Safety Report 6754296-1 (Version None)
Quarter: 2010Q2

REPORT INFORMATION
  Report Type: 
  Country: None (occurrence: None)
  Receive Date: 20100524
  Receipt Date: 20100325
  Transmission Date: 20101027
  Serious: No
  Sender: FDA-Public Use
  Company Number: 009348

PATIENT
  Sex: Female
  Weight: 87.9 kg

DRUGS (7)
  1. CIMZIA [Suspect]
     Indication: RHEUMATOID ARTHRITIS
     Dosage: SUBCUTANEOUS
     Route: 058
     Dates: start: 20100317
  2. LEVOTHYROXINE SODIUM [Concomitant]
  3. ALENDRONATE SODIUM [Concomitant]
  4. MULTI-VITAMIN [Concomitant]
  5. CENOVIS MEGA CALCIUM PLUS D [Concomitant]
  6. ACTILIFE VITAMIN C ACEROLA [Concomitant]
  7. FISH OIL [Concomitant]

REACTIONS (2)
  - PRURITUS [None]
  - RASH [None]
